FAERS Safety Report 6871707-1 (Version None)
Quarter: 2010Q3

REPORT INFORMATION
  Report Type: 
  Country: None (occurrence: None)
  Receive Date: 20100723
  Receipt Date: 20100702
  Transmission Date: 20110219
  Serious: Yes (Hospitalization)
  Sender: FDA-Public Use
  Company Number: A0833957A

PATIENT
  Age: 51 Year
  Sex: Female

DRUGS (11)
  1. AVANDIA [Suspect]
     Dosage: 4MG PER DAY
     Route: 048
     Dates: start: 20030620, end: 20060223
  2. NORVASC [Concomitant]
  3. LASIX [Concomitant]
  4. HUMULIN R [Concomitant]
  5. ELAVIL [Concomitant]
  6. TAGAMET [Concomitant]
  7. NORVASC [Concomitant]
  8. HYZAAR [Concomitant]
  9. ZOCOR [Concomitant]
  10. CELEBREX [Concomitant]
  11. TIAZAC [Concomitant]

REACTIONS (2)
  - CARDIAC FAILURE CONGESTIVE [None]
  - MYOCARDIAL INFARCTION [None]
